FAERS Safety Report 8152710-0 (Version None)
Quarter: 2012Q1

REPORT INFORMATION
  Report Type: 
  Country: None (occurrence: None)
  Receive Date: 20120221
  Receipt Date: 20120213
  Transmission Date: 20120608
  Serious: Yes (Other)
  Sender: FDA-Public Use
  Company Number: FR-UCBSA-051395

PATIENT
  Age: 45 Year
  Sex: Male

DRUGS (3)
  1. VIMPAT [Suspect]
     Indication: PARTIAL SEIZURES
     Route: 048
  2. VIMPAT [Suspect]
     Route: 048
  3. ZONEGRAN [Concomitant]
     Indication: PARTIAL SEIZURES
     Dosage: UNKNOWN DOSE
     Route: 048

REACTIONS (2)
  - ELECTROCARDIOGRAM PR PROLONGATION [None]
  - CHEST PAIN [None]
